FAERS Safety Report 7969593-1 (Version None)
Quarter: 2011Q4

REPORT INFORMATION
  Report Type: 
  Country: None (occurrence: None)
  Receive Date: 20111212
  Receipt Date: 20111206
  Transmission Date: 20120403
  Serious: Yes (Disabling, Other)
  Sender: FDA-Public Use
  Company Number: NZ-PFIZER INC-2011254202

PATIENT
  Age: 69 Year
  Sex: Female

DRUGS (6)
  1. SUTENT [Suspect]
     Indication: METASTATIC RENAL CELL CARCINOMA
     Dosage: 50 MG, 1X/DAY
     Route: 048
     Dates: start: 20110825, end: 20110919
  2. BENDROFLUAZIDE [Concomitant]
     Dosage: UNK
  3. MORPHINE SULFATE [Concomitant]
     Indication: PAIN
     Dosage: 10 MG, AS NEEDED
     Route: 048
  4. IBUPROFEN [Concomitant]
     Indication: PAIN
     Dosage: 200 MG, 4 HOURLY
     Route: 048
  5. MORPHINE [Concomitant]
     Indication: PAIN
     Dosage: 10 UNK, 2X/DAY
     Route: 048
  6. ACETAMINOPHEN [Concomitant]
     Indication: PAIN
     Dosage: 1000 MG, 6 HOURLY
     Route: 048

REACTIONS (6)
  - MUCOSAL INFLAMMATION [None]
  - MOUTH HAEMORRHAGE [None]
  - ANAL FISSURE [None]
  - DIARRHOEA [None]
  - PROCTALGIA [None]
  - ERYTHEMA [None]
